FAERS Safety Report 9376233 (Version 13)
Quarter: 2015Q3

REPORT INFORMATION
  Report Type: Report from Study
  Country: CA (occurrence: CA)
  Receive Date: 20130701
  Receipt Date: 20150904
  Transmission Date: 20151125
  Serious: Yes (Hospitalization, Other)
  Sender: FDA-Public Use
  Company Number: CA-ROCHE-1242831

PATIENT
  Age: 70 Year
  Sex: Female
  Weight: 67.7 kg

DRUGS (21)
  1. LANTUS [Concomitant]
     Active Substance: INSULIN GLARGINE
  2. METFORMIN [Concomitant]
     Active Substance: METFORMIN HYDROCHLORIDE
  3. CRESTOR [Concomitant]
     Active Substance: ROSUVASTATIN CALCIUM
  4. VITAMIN B6 [Concomitant]
     Active Substance: PYRIDOXINE HYDROCHLORIDE
  5. COVERSYL [Concomitant]
     Active Substance: PERINDOPRIL
  6. ACETAMINOPHEN. [Concomitant]
     Active Substance: ACETAMINOPHEN
  7. VITAMIN B12 [Concomitant]
     Active Substance: CYANOCOBALAMIN
  8. RITUXAN [Suspect]
     Active Substance: RITUXIMAB
     Indication: RHEUMATOID ARTHRITIS
     Route: 042
     Dates: start: 20110623, end: 20110707
  9. ACTEMRA [Suspect]
     Active Substance: TOCILIZUMAB
     Indication: RHEUMATOID ARTHRITIS
     Route: 042
     Dates: start: 20120518
  10. METHOTREXATE [Concomitant]
     Active Substance: METHOTREXATE
  11. DIAMICRON MR [Concomitant]
     Active Substance: GLICLAZIDE
     Indication: DIABETES MELLITUS
  12. PREDNISONE. [Concomitant]
     Active Substance: PREDNISONE
  13. CELEBREX [Concomitant]
     Active Substance: CELECOXIB
     Indication: HEPATITIS
  14. DIPHENHYDRAMINE HCL [Concomitant]
     Active Substance: DIPHENHYDRAMINE HYDROCHLORIDE
     Route: 048
     Dates: start: 20110623, end: 20110707
  15. ARTHROTEC [Concomitant]
     Active Substance: DICLOFENAC SODIUM\MISOPROSTOL
  16. OMEPRAZOLE. [Concomitant]
     Active Substance: OMEPRAZOLE
  17. TYLENOL WITH CODEINE [Concomitant]
     Active Substance: ACETAMINOPHEN\CODEINE PHOSPHATE
  18. LUVOX [Concomitant]
     Active Substance: FLUVOXAMINE MALEATE
  19. GABAPENTIN. [Concomitant]
     Active Substance: GABAPENTIN
  20. DOCUSATE [Concomitant]
     Active Substance: DOCUSATE
  21. METHYLPREDNISOLONE. [Concomitant]
     Active Substance: METHYLPREDNISOLONE
     Route: 042
     Dates: start: 20110623, end: 20110707

REACTIONS (14)
  - Urinary tract infection [Unknown]
  - Rheumatoid arthritis [Unknown]
  - Nasopharyngitis [Unknown]
  - Staphylococcal infection [Not Recovered/Not Resolved]
  - Osteoarthritis [Unknown]
  - Fall [Unknown]
  - Arthralgia [Recovering/Resolving]
  - Localised infection [Recovering/Resolving]
  - Diabetes mellitus [Unknown]
  - Joint swelling [Recovering/Resolving]
  - Blood pressure systolic decreased [Unknown]
  - Femur fracture [Unknown]
  - Hypotension [Recovered/Resolved]
  - Poor venous access [Unknown]

NARRATIVE: CASE EVENT DATE: 2013
